FAERS Safety Report 15238924 (Version 2)
Quarter: 2020Q3

REPORT INFORMATION
  Report Type: Spontaneous
  Country: AT (occurrence: AT)
  Receive Date: 20180803
  Receipt Date: 20180816
  Transmission Date: 20201105
  Serious: Yes (Death, Hospitalization, Other)
  Sender: FDA-Public Use
  Company Number: AT-ASTRAZENECA-2018SE91277

PATIENT
  Age: 80 Year
  Sex: Female

DRUGS (47)
  1. METHYLPREDNISOLONE. [Interacting]
     Active Substance: METHYLPREDNISOLONE
     Indication: PRODUCT USED FOR UNKNOWN INDICATION
     Route: 042
  2. IBANDRONIC ACID. [Interacting]
     Active Substance: IBANDRONIC ACID
     Indication: OSTEOPOROSIS
     Dosage: 3 MG, EVERY 3 MONTHS
     Route: 065
  3. DULOXETINE. [Interacting]
     Active Substance: DULOXETINE
     Indication: PAIN
     Route: 065
  4. LEVODOPA [Interacting]
     Active Substance: LEVODOPA
     Indication: RESTLESS LEGS SYNDROME
     Route: 065
  5. BENSERAZIDE [Suspect]
     Active Substance: BENSERAZIDE
     Indication: RESTLESS LEGS SYNDROME
     Route: 065
  6. SERTRALINE [Suspect]
     Active Substance: SERTRALINE HYDROCHLORIDE
     Indication: DEPRESSION
     Route: 065
  7. ACETAZOLAMIDE. [Suspect]
     Active Substance: ACETAZOLAMIDE
     Indication: ALKALOSIS
     Route: 065
  8. ATORVASTATIN [Interacting]
     Active Substance: ATORVASTATIN
     Indication: HYPERCHOLESTEROLAEMIA
     Route: 065
  9. IPRATROPIUM [Concomitant]
     Active Substance: IPRATROPIUM
     Indication: PRODUCT USED FOR UNKNOWN INDICATION
  10. LEVOTHYROXINE. [Interacting]
     Active Substance: LEVOTHYROXINE
     Indication: HYPOTHYROIDISM
     Route: 065
  11. TRAMADOL. [Interacting]
     Active Substance: TRAMADOL
     Indication: PAIN
     Route: 065
  12. OXYGEN. [Interacting]
     Active Substance: OXYGEN
     Indication: PERIPHERAL VENOUS DISEASE
     Dosage: 2 L, UNK
     Route: 065
  13. OXYGEN. [Interacting]
     Active Substance: OXYGEN
     Indication: HYPOXIA
     Dosage: 2 L, UNK
     Route: 065
  14. BISOPROLOL FUMARATE. [Interacting]
     Active Substance: BISOPROLOL FUMARATE
     Indication: CORONARY ARTERY DISEASE
     Route: 065
  15. ALPRAZOLAM. [Suspect]
     Active Substance: ALPRAZOLAM
     Indication: FEAR
     Dosage: 0.5 MG, UNK
     Route: 065
  16. ACETAZOLAMIDE. [Suspect]
     Active Substance: ACETAZOLAMIDE
     Indication: ALKALOSIS
     Route: 065
  17. METAMIZOLE SODIUM [Suspect]
     Active Substance: METAMIZOLE SODIUM
     Indication: PRODUCT USED FOR UNKNOWN INDICATION
     Route: 065
  18. THEOPHYLLINE [Suspect]
     Active Substance: THEOPHYLLINE ANHYDROUS
     Indication: CHRONIC OBSTRUCTIVE PULMONARY DISEASE
     Route: 065
  19. OMEPRAZOLE. [Interacting]
     Active Substance: OMEPRAZOLE
     Indication: GASTRITIS
     Route: 065
  20. DULOXETINE. [Interacting]
     Active Substance: DULOXETINE
     Indication: DEPRESSION
     Route: 065
  21. FENOTEROL [Interacting]
     Active Substance: FENOTEROL
     Indication: CHRONIC OBSTRUCTIVE PULMONARY DISEASE
     Route: 055
  22. DIOSMIN [Interacting]
     Active Substance: DIOSMIN
     Indication: PERIPHERAL VENOUS DISEASE
     Dosage: 450 MG, QD
     Route: 065
  23. RISPERIDONE. [Suspect]
     Active Substance: RISPERIDONE
     Indication: PRODUCT USED FOR UNKNOWN INDICATION
     Dosage: 1 MG, UNK
     Route: 065
  24. MORPHINE [Concomitant]
     Active Substance: MORPHINE
     Indication: PRODUCT USED FOR UNKNOWN INDICATION
  25. ACETYLSALICYLIC ACID [Suspect]
     Active Substance: ASPIRIN
     Indication: CORONARY ARTERY DISEASE
     Route: 065
  26. TIOTROPIUM [Interacting]
     Active Substance: TIOTROPIUM
     Indication: CHRONIC OBSTRUCTIVE PULMONARY DISEASE
     Route: 055
  27. DULOXETINE. [Interacting]
     Active Substance: DULOXETINE
     Indication: PAIN
     Route: 065
  28. PREDNISONE. [Interacting]
     Active Substance: PREDNISONE
     Indication: CHRONIC OBSTRUCTIVE PULMONARY DISEASE
     Route: 065
  29. ALGELDRATE [Concomitant]
     Active Substance: ALGELDRATE
     Indication: PRODUCT USED FOR UNKNOWN INDICATION
  30. ACETYLCYSTEINE. [Interacting]
     Active Substance: ACETYLCYSTEINE
     Indication: CHRONIC OBSTRUCTIVE PULMONARY DISEASE
     Route: 065
  31. IBANDRONIC ACID. [Interacting]
     Active Substance: IBANDRONIC ACID
     Indication: PERIPHERAL VENOUS DISEASE
     Dosage: 3 MG, EVERY 3 MONTHS
     Route: 065
  32. SALMETEROL [Interacting]
     Active Substance: SALMETEROL
     Indication: CHRONIC OBSTRUCTIVE PULMONARY DISEASE
     Route: 055
  33. PRAMIPEXOLE. [Interacting]
     Active Substance: PRAMIPEXOLE
     Indication: RESTLESS LEGS SYNDROME
     Route: 065
  34. ACETAZOLAMIDE. [Suspect]
     Active Substance: ACETAZOLAMIDE
     Indication: HYPERCAPNIA
     Route: 065
  35. DICLOFENAC [Interacting]
     Active Substance: DICLOFENAC
     Indication: PAIN
     Route: 065
  36. FUROSEMIDE. [Concomitant]
     Active Substance: FUROSEMIDE
     Indication: PRODUCT USED FOR UNKNOWN INDICATION
  37. GABAPENTIN. [Interacting]
     Active Substance: GABAPENTIN
     Indication: PAIN
     Route: 065
  38. DULOXETINE. [Interacting]
     Active Substance: DULOXETINE
     Indication: DEPRESSION
     Route: 065
  39. ACETAZOLAMIDE. [Suspect]
     Active Substance: ACETAZOLAMIDE
     Indication: HYPERCAPNIA
     Route: 065
  40. HESPERIDIN [Concomitant]
     Active Substance: HESPERIDIN
     Indication: PRODUCT USED FOR UNKNOWN INDICATION
     Dosage: UNK
  41. DIPHENHYDRAMINE. [Concomitant]
     Active Substance: DIPHENHYDRAMINE
     Indication: PRODUCT USED FOR UNKNOWN INDICATION
     Dosage: UNK
  42. FLUTICASONE. [Interacting]
     Active Substance: FLUTICASONE
     Indication: CHRONIC OBSTRUCTIVE PULMONARY DISEASE
     Route: 055
  43. ERGOCALCIFEROL. [Interacting]
     Active Substance: ERGOCALCIFEROL
     Indication: VITAMIN D DEFICIENCY
     Dosage: 16000 IU, 1/WEEK
     Route: 065
  44. ALPRAZOLAM. [Suspect]
     Active Substance: ALPRAZOLAM
     Indication: DYSPNOEA
     Dosage: 0.5 MG, UNK
     Route: 065
  45. HYDROMORPHONE HYDROCHLORIDE. [Suspect]
     Active Substance: HYDROMORPHONE HYDROCHLORIDE
     Indication: PAIN
     Route: 065
  46. CLOPIDOGREL [Suspect]
     Active Substance: CLOPIDOGREL BISULFATE
     Indication: CORONARY ARTERY DISEASE
     Route: 065
  47. PIPERACILLIN SODIUM, TAZOBACTAM SODIUM [Concomitant]
     Active Substance: PIPERACILLIN SODIUM\TAZOBACTAM SODIUM
     Indication: PRODUCT USED FOR UNKNOWN INDICATION

REACTIONS (16)
  - Erysipelas [Fatal]
  - Hypercapnia [Fatal]
  - Back pain [Fatal]
  - Chronic obstructive pulmonary disease [Fatal]
  - Acute respiratory failure [Fatal]
  - Arthralgia [Fatal]
  - Pain [Fatal]
  - Drug interaction [Fatal]
  - Clostridium difficile colitis [Fatal]
  - Lung disorder [Fatal]
  - Delirium [Fatal]
  - Somnolence [Fatal]
  - Off label use [Fatal]
  - Acute myocardial infarction [Fatal]
  - Death [Fatal]
  - Urinary tract infection [Fatal]

NARRATIVE: CASE EVENT DATE: 201510
